FAERS Safety Report 14503793 (Version 1)
Quarter: 2018Q1

REPORT INFORMATION
  Report Type: Spontaneous
  Country: US (occurrence: US)
  Receive Date: 20180208
  Receipt Date: 20180208
  Transmission Date: 20180509
  Serious: No
  Sender: FDA-Public Use
  Company Number: US-JNJFOC-20180110822

PATIENT
  Age: 84 Year
  Sex: Male

DRUGS (9)
  1. METFORMIN [Concomitant]
     Active Substance: METFORMIN HYDROCHLORIDE
  2. IRON [Concomitant]
     Active Substance: IRON
  3. SIMVASTATIN. [Concomitant]
     Active Substance: SIMVASTATIN
  4. PHYTOMENADIONE [Concomitant]
     Active Substance: PHYTONADIONE
  5. IMBRUVICA [Suspect]
     Active Substance: IBRUTINIB
     Indication: B-CELL LYMPHOMA
     Route: 048
     Dates: start: 20171208
  6. VITAMIN D [Concomitant]
     Active Substance: CHOLECALCIFEROL
  7. ZOLPIDEM [Concomitant]
     Active Substance: ZOLPIDEM\ZOLPIDEM TARTRATE
  8. ASPIRIN. [Concomitant]
     Active Substance: ASPIRIN
  9. IMBRUVICA [Suspect]
     Active Substance: IBRUTINIB
     Indication: CHRONIC LYMPHOCYTIC LEUKAEMIA
     Route: 048
     Dates: start: 20171208

REACTIONS (6)
  - Skin ulcer [Unknown]
  - Contusion [Unknown]
  - Product use in unapproved indication [Unknown]
  - Off label use [Unknown]
  - Haemorrhage [Unknown]
  - Peripheral swelling [Unknown]

NARRATIVE: CASE EVENT DATE: 201712
